FAERS Safety Report 6895602-7 (Version None)
Quarter: 2010Q3

REPORT INFORMATION
  Report Type: 
  Country: None (occurrence: None)
  Receive Date: 20100802
  Receipt Date: 20100727
  Transmission Date: 20110219
  Serious: Yes (Life-Threatening, Disabling)
  Sender: FDA-Public Use
  Company Number: PHHO2010DE11373

PATIENT
  Sex: Male
  Weight: 83 kg

DRUGS (4)
  1. STI571/CGP57148B T35717+CAPS [Suspect]
     Indication: ACUTE LYMPHOCYTIC LEUKAEMIA
     Dosage: 600MG
     Route: 048
     Dates: start: 20091215
  2. CYCLOPHOSPHAMIDE [Suspect]
     Dosage: 2110MG
     Dates: start: 20100106
  3. CYTARABINE [Suspect]
     Dosage: 158MG
     Dates: start: 20100122
  4. MERCAPTOPURINE [Suspect]
     Dosage: 128MG
     Dates: start: 20100113

REACTIONS (7)
  - CONVULSION [None]
  - DISTURBANCE IN ATTENTION [None]
  - DYSPHAGIA [None]
  - ENCEPHALOPATHY [None]
  - SUBDURAL HAEMATOMA [None]
  - SUBDURAL HAEMATOMA EVACUATION [None]
  - TRACHEOSTOMY [None]
